FAERS Safety Report 5911289-1 (Version None)
Quarter: 2008Q4

REPORT INFORMATION
  Report Type: 
  Country: None (occurrence: None)
  Receive Date: 20081007
  Receipt Date: 20081002
  Transmission Date: 20090506
  Serious: No
  Sender: FDA-Public Use
  Company Number: US-B.I. PHARMACEUTICALS,INC./RIDGEFIELD-2008-BP-15272BP

PATIENT
  Age: 77 Year
  Sex: Female

DRUGS (6)
  1. SPIRIVA [Suspect]
     Indication: BRONCHITIS CHRONIC
     Dosage: 18MCG
     Route: 055
     Dates: start: 20051001
  2. ALBUTEROL [Concomitant]
     Indication: DYSPNOEA
  3. COUMADIN [Concomitant]
     Indication: THROMBOSIS
  4. SYNTHROID [Concomitant]
     Indication: THYROID DISORDER
  5. LASIX [Concomitant]
     Indication: OEDEMA PERIPHERAL
  6. EVOSAC [Concomitant]
     Indication: DRY MOUTH

REACTIONS (3)
  - DRUG INEFFECTIVE [None]
  - DRY MOUTH [None]
  - RASH PRURITIC [None]
